FAERS Safety Report 13166979 (Version 1)
Quarter: 2017Q1

REPORT INFORMATION
  Report Type: Spontaneous
  Country: US (occurrence: US)
  Receive Date: 20170130
  Receipt Date: 20170130
  Transmission Date: 20170428
  Serious: Yes (Death)
  Sender: FDA-Public Use
  Company Number: None

PATIENT
  Age: 57 Year
  Sex: Female
  Weight: 92.8 kg

DRUGS (1)
  1. APIXABAN [Suspect]
     Active Substance: APIXABAN
     Indication: THROMBOSIS PROPHYLAXIS
     Route: 048
     Dates: start: 20161115, end: 20161121

REACTIONS (7)
  - Septic shock [None]
  - Mental status changes [None]
  - Enterococcal infection [None]
  - Pulmonary embolism [None]
  - Haemorrhage intracranial [None]
  - Brain midline shift [None]
  - Urinary tract infection enterococcal [None]

NARRATIVE: CASE EVENT DATE: 20161116
